FAERS Safety Report 7346311-1 (Version None)
Quarter: 2011Q1

REPORT INFORMATION
  Report Type: 
  Country: None (occurrence: None)
  Receive Date: 20110311
  Receipt Date: 20100617
  Transmission Date: 20110831
  Serious: No
  Sender: FDA-Public Use
  Company Number: A0865749A

PATIENT

DRUGS (1)
  1. VUSION [Suspect]
     Indication: DERMATITIS DIAPER
     Route: 065

REACTIONS (1)
  - NONSPECIFIC REACTION [None]
